FAERS Safety Report 20119564 (Version 1)
Quarter: 2021Q4

REPORT INFORMATION
  Report Type: Report from Study
  Country: US (occurrence: None)
  Receive Date: 20211126
  Receipt Date: 20211126
  Transmission Date: 20220303
  Serious: Yes (Death)
  Sender: FDA-Public Use
  Company Number: 2021A832066

PATIENT
  Sex: Female
  Weight: 65.8 kg

DRUGS (10)
  1. CALQUENCE [Suspect]
     Active Substance: ACALABRUTINIB
     Indication: Lymphocytic leukaemia
     Route: 048
  2. AMIODARONE [Concomitant]
     Active Substance: AMIODARONE
  3. AYR [Concomitant]
  4. CALMAG [Concomitant]
  5. ELIQUIS [Concomitant]
     Active Substance: APIXABAN
  6. KEPPRA [Concomitant]
     Active Substance: LEVETIRACETAM
  7. RIVASTIGMINE [Concomitant]
     Active Substance: RIVASTIGMINE
  8. TYLENOL [Concomitant]
     Active Substance: ACETAMINOPHEN
  9. VITAMIN B12 [Concomitant]
     Active Substance: CYANOCOBALAMIN
  10. VITAMIN D [Concomitant]
     Active Substance: VITAMIN D NOS

REACTIONS (1)
  - Death [Fatal]
